FAERS Safety Report 25740711 (Version 2)
Quarter: 2025Q4

REPORT INFORMATION
  Report Type: Spontaneous
  Country: US (occurrence: US)
  Receive Date: 20250829
  Receipt Date: 20251120
  Transmission Date: 20260118
  Serious: No
  Sender: SANOFI AVENTIS
  Company Number: US-SA-2025SA257862

PATIENT
  Age: 79 Year
  Sex: Male

DRUGS (1)
  1. DUPIXENT [Suspect]
     Active Substance: DUPILUMAB
     Indication: Dermatitis atopic
     Dosage: 300 MG, QOW
     Route: 058

REACTIONS (4)
  - Eyelid irritation [Unknown]
  - Dry eye [Recovering/Resolving]
  - Eye irritation [Recovering/Resolving]
  - Condition aggravated [Recovering/Resolving]
